FAERS Safety Report 6428533-7 (Version None)
Quarter: 2009Q4

REPORT INFORMATION
  Report Type: 
  Country: None (occurrence: None)
  Receive Date: 20091105
  Receipt Date: 20091102
  Transmission Date: 20100525
  Serious: Yes (Hospitalization)
  Sender: FDA-Public Use
  Company Number: DE-BAYER-200930658GPV

PATIENT
  Age: 59 Year
  Sex: Female

DRUGS (2)
  1. AVELOX [Suspect]
     Indication: PNEUMONIA
     Route: 048
     Dates: start: 20090801, end: 20090801
  2. CEFUROXIME [Concomitant]

REACTIONS (6)
  - CIRCULATORY COLLAPSE [None]
  - ELECTROCARDIOGRAM QT PROLONGED [None]
  - NYSTAGMUS [None]
  - PALPITATIONS [None]
  - TACHYCARDIA [None]
  - VERTIGO [None]
